FAERS Safety Report 14900608 (Version 2)
Quarter: 2018Q2

REPORT INFORMATION
  Report Type: Report from Study
  Country: GB (occurrence: GB)
  Receive Date: 20180516
  Receipt Date: 20180629
  Transmission Date: 20180711
  Serious: Yes (Other)
  Sender: FDA-Public Use
  Company Number: PHHY2018GB007603

PATIENT
  Age: 80 Year
  Sex: Male

DRUGS (2)
  1. ENTRESTO [Suspect]
     Active Substance: SACUBITRIL\VALSARTAN
     Dosage: 200 MG (97MG OF SACUBITRIL AND 103MG OF VALSARTAN)ID
     Route: 048
     Dates: start: 20170830
  2. ENTRESTO [Suspect]
     Active Substance: SACUBITRIL\VALSARTAN
     Indication: CARDIAC FAILURE CHRONIC
     Dosage: 100 MG (49MG OF SACUBITRIL AND 51MG OF VALSARTAN)ID
     Route: 048
     Dates: start: 20170811, end: 20170829

REACTIONS (3)
  - Adenocarcinoma [Unknown]
  - Diverticulitis [Not Recovered/Not Resolved]
  - Large intestine polyp [Not Recovered/Not Resolved]

NARRATIVE: CASE EVENT DATE: 20180107
